FAERS Safety Report 9958652 (Version 1)
Quarter: 2014Q1

REPORT INFORMATION
  Report Type: Spontaneous
  Country: CH (occurrence: None)
  Receive Date: 20140227
  Receipt Date: 20140227
  Transmission Date: 20141002
  Serious: Yes (Death, Hospitalization)
  Sender: FDA-Public Use
  Company Number: ACET20140004

PATIENT
  Age: 41 Year
  Sex: Male

DRUGS (6)
  1. EXTRA STRENGTH QPAP [Suspect]
     Indication: SUICIDE ATTEMPT
     Route: 048
  2. ALLOPURINOL [Suspect]
     Indication: SUICIDE ATTEMPT
     Route: 048
  3. COLCHICINE [Suspect]
     Indication: SUICIDE ATTEMPT
     Route: 048
  4. ACEMETACIN [Suspect]
     Indication: SUICIDE ATTEMPT
     Route: 048
  5. ALCOHOL (ETHANOL) [Suspect]
     Indication: SUICIDE ATTEMPT
     Dosage: TWO LITRES OF WINE, ONE TIME
     Route: 048
  6. CANNABIS [Suspect]
     Indication: PRODUCT USED FOR UNKNOWN INDICATION

REACTIONS (22)
  - Hepatic failure [None]
  - Completed suicide [None]
  - Vomiting [None]
  - Diarrhoea [None]
  - Abdominal pain [None]
  - Incorrect dose administered [None]
  - Intentional self-injury [None]
  - Headache [None]
  - Anaemia [None]
  - Melaena [None]
  - Renal failure acute [None]
  - Hypoglycaemia [None]
  - Metabolic acidosis [None]
  - General physical health deterioration [None]
  - Hepatitis acute [None]
  - Pancreatitis acute [None]
  - Gastrointestinal haemorrhage [None]
  - Pancytopenia [None]
  - Coagulopathy [None]
  - Multi-organ failure [None]
  - Toxicity to various agents [None]
  - Hepatotoxicity [None]
